FAERS Safety Report 21782608 (Version 1)
Quarter: 2022Q4

REPORT INFORMATION
  Report Type: Report from Study
  Country: CA (occurrence: CA)
  Receive Date: 20221227
  Receipt Date: 20221227
  Transmission Date: 20230113
  Serious: Yes (Death)
  Sender: FDA-Public Use
  Company Number: CA-Melinta Therapeutics, LLC-CA-MLNT-22-00326

PATIENT
  Age: 74 Year
  Sex: Male

DRUGS (1)
  1. VABOMERE [Suspect]
     Active Substance: MEROPENEM\VABORBACTAM
     Indication: Citrobacter infection
     Dosage: NOT PROVIDED.
     Route: 042
     Dates: start: 20221010

REACTIONS (2)
  - Death [Fatal]
  - Off label use [Fatal]

NARRATIVE: CASE EVENT DATE: 20221010
